FAERS Safety Report 8988535 (Version 2)
Quarter: 2013Q1

REPORT INFORMATION
  Report Type: Spontaneous
  Country: GB (occurrence: None)
  Receive Date: 20121218
  Receipt Date: 20121220
  Transmission Date: 20140127
  Serious: Yes (Other)
  Sender: FDA-Public Use
  Company Number: AUR-APL-2012-05296

PATIENT
  Age: 77 Year
  Sex: Male
  Weight: 85 kg

DRUGS (9)
  1. ALFUZOSIN (ALFUZOSIN) [Suspect]
     Indication: HAEMATURIA
     Dosage: (2.5 MG,2 IN 1 D)
     Route: 048
     Dates: start: 20121119, end: 20121127
  2. ALFUZOSIN (ALFUZOSIN) [Suspect]
     Indication: URINARY RETENTION
     Dosage: (2.5 MG,2 IN 1 D)
     Route: 048
     Dates: start: 20121119, end: 20121127
  3. ASPIRIN (ACETYLSALICYLIC ACID) [Concomitant]
  4. CALCICHEW D3 (LEKOVIT CA) [Concomitant]
  5. FINASTERIDE [Concomitant]
  6. LANSOPRAZOLE [Concomitant]
  7. LAXIDO [Concomitant]
  8. MAGNESIUM HYDROXIDE [Concomitant]
  9. SENNA (SENNA ALEXANDRINA) [Concomitant]

REACTIONS (2)
  - Liver function test abnormal [None]
  - Off label use [None]
